FAERS Safety Report 8445279-4 (Version None)
Quarter: 2012Q2

REPORT INFORMATION
  Report Type: 
  Country: None (occurrence: None)
  Receive Date: 20120611
  Receipt Date: 20120531
  Transmission Date: 20120825
  Serious: Yes (Hospitalization)
  Sender: FDA-Public Use
  Company Number: 2012SP030006

PATIENT
  Age: 57 Year
  Sex: Female
  Weight: 82 kg

DRUGS (2)
  1. SYCREST (ASENAPINE) [Suspect]
     Indication: BIPOLAR I DISORDER
     Dosage: 10 MG, QD, PO
     Route: 048
     Dates: start: 20110908
  2. LAMOTRIGINE [Concomitant]

REACTIONS (1)
  - INCREASED APPETITE [None]
